FAERS Safety Report 4372221-8 (Version None)
Quarter: 2004Q2

REPORT INFORMATION
  Report Type: 
  Country: None (occurrence: None)
  Receive Date: 20040607
  Receipt Date: 20040527
  Transmission Date: 20050107
  Serious: Yes (Hospitalization, Other)
  Sender: FDA-Public Use
  Company Number: FR-BRISTOL-MYERS SQUIBB COMPANY-12599213

PATIENT
  Age: 16 Year
  Sex: Male

DRUGS (2)
  1. AXEPIM INJ 2 GM [Suspect]
     Route: 042
     Dates: start: 19971212
  2. TARGOCID [Suspect]
     Dates: start: 19971212, end: 19980106

REACTIONS (4)
  - ACCIDENTAL OVERDOSE [None]
  - MEDICATION ERROR [None]
  - OSTEOPOROSIS [None]
  - RENAL FAILURE [None]
